FAERS Safety Report 5904530-2 (Version None)
Quarter: 2008Q3

REPORT INFORMATION
  Report Type: 
  Country: None (occurrence: None)
  Receive Date: 20080930
  Receipt Date: 20080930
  Transmission Date: 20090109
  Serious: Yes (Hospitalization)
  Sender: FDA-Public Use
  Company Number: None

PATIENT
  Age: 56 Year
  Sex: Male
  Weight: 128 kg

DRUGS (2)
  1. LISINOPRIL [Suspect]
     Indication: HYPERTENSION
     Dosage: 40 MG EVERYDAY PO
     Route: 048
     Dates: start: 20050621, end: 20080713
  2. SPIRONOLACTONE [Suspect]
     Indication: OEDEMA
     Dosage: 50 MG BID PO
     Route: 048
     Dates: start: 20070815, end: 20080702

REACTIONS (5)
  - DEHYDRATION [None]
  - DIALYSIS [None]
  - DIARRHOEA [None]
  - HYPERKALAEMIA [None]
  - RENAL FAILURE ACUTE [None]
